FAERS Safety Report 9507322 (Version 3)
Quarter: 2013Q4

REPORT INFORMATION
  Report Type: Spontaneous
  Country: US (occurrence: US)
  Receive Date: 20130909
  Receipt Date: 20131113
  Transmission Date: 20140711
  Serious: Yes (Other)
  Sender: FDA-Public Use
  Company Number: US-PFIZER INC-2013255835

PATIENT
  Sex: Female

DRUGS (2)
  1. PREMARIN [Suspect]
     Dosage: 0.15 MG, DAILY (0.3 MG, CUT INTO HALF)
     Dates: start: 20130904
  2. PREMARIN [Suspect]

REACTIONS (3)
  - Joint injury [Unknown]
  - Limb deformity [Unknown]
  - Intentional drug misuse [Unknown]
